FAERS Safety Report 8922025 (Version 2)
Quarter: 2013Q1

REPORT INFORMATION
  Report Type: Spontaneous
  Country: IS (occurrence: IS)
  Receive Date: 20121123
  Receipt Date: 20130104
  Transmission Date: 20140127
  Serious: Yes (Death)
  Sender: FDA-Public Use
  Company Number: PHHY2012IS106982

PATIENT
  Sex: Male

DRUGS (1)
  1. LEPONEX [Suspect]

REACTIONS (1)
  - Myocardial infarction [Fatal]
